FAERS Safety Report 7217136-2 (Version None)
Quarter: 2011Q1

REPORT INFORMATION
  Report Type: 
  Country: None (occurrence: None)
  Receive Date: 20110110
  Receipt Date: 20110105
  Transmission Date: 20110831
  Serious: Yes (Hospitalization)
  Sender: FDA-Public Use
  Company Number: JP-ABBOTT-11P-087-0695382-00

PATIENT
  Age: 40 Year
  Sex: Male

DRUGS (1)
  1. CEFZON [Suspect]
     Indication: CELLULITIS STREPTOCOCCAL
     Route: 048
     Dates: start: 20101224

REACTIONS (1)
  - RASH GENERALISED [None]
